FAERS Safety Report 7681366-6 (Version None)
Quarter: 2011Q3

REPORT INFORMATION
  Report Type: 
  Country: None (occurrence: None)
  Receive Date: 20110812
  Receipt Date: 20110729
  Transmission Date: 20111222
  Serious: Yes (Other)
  Sender: FDA-Public Use
  Company Number: PHHY2011FR47144

PATIENT
  Sex: Male
  Weight: 58 kg

DRUGS (3)
  1. VALSARTAN  AND HYDROCHLOROTHIAZIDE [Suspect]
     Indication: HYPERTENSION
     Dosage: 1 DF, QD (80 MG VALS AND 12.5 MG HYDR)
     Route: 048
     Dates: start: 20090101
  2. PRAMIPEXOLE DIHYDROCHLORIDE [Concomitant]
     Indication: RESTLESS LEGS SYNDROME
     Dosage: 2 DF, QD (IN THE EVENING)
     Dates: start: 20100101
  3. ZOPICLONE [Concomitant]
     Indication: INSOMNIA
     Dosage: QD (AT BEDTIME)
     Dates: start: 20100101

REACTIONS (5)
  - SKIN EXFOLIATION [None]
  - SKIN LESION [None]
  - RASH VESICULAR [None]
  - SKIN CHAPPED [None]
  - DYSHIDROSIS [None]
